FAERS Safety Report 16688182 (Version 2)
Quarter: 2019Q3

REPORT INFORMATION
  Report Type: Spontaneous
  Country: PL (occurrence: PL)
  Receive Date: 20190809
  Receipt Date: 20190923
  Transmission Date: 20191004
  Serious: Yes (Hospitalization)
  Sender: FDA-Public Use
  Company Number: PL-UCBSA-2019033501

PATIENT
  Age: 58 Year
  Sex: Male

DRUGS (10)
  1. KEPPRA [Suspect]
     Active Substance: LEVETIRACETAM
     Dosage: 2 ? 1250 MG
  2. KEPPRA [Suspect]
     Active Substance: LEVETIRACETAM
     Dosage: 2 X 1000 MG
     Dates: start: 2017
  3. METHOTREXATE. [Concomitant]
     Active Substance: METHOTREXATE
     Indication: PRODUCT USED FOR UNKNOWN INDICATION
     Dosage: ONCE PER WEEK 10-0-0 MG
  4. PREDNISONE. [Concomitant]
     Active Substance: PREDNISONE
     Dosage: 30-20-0 MG
  5. MYCOPHENOLATE MOFETIL. [Concomitant]
     Active Substance: MYCOPHENOLATE MOFETIL
     Indication: PRODUCT USED FOR UNKNOWN INDICATION
     Dosage: 2 ? 1000 MG
  6. METHYLPREDNISOLONE. [Concomitant]
     Active Substance: METHYLPREDNISOLONE
     Indication: PRODUCT USED FOR UNKNOWN INDICATION
     Dosage: UNKNOWN DOSE
     Route: 042
  7. KEPPRA [Suspect]
     Active Substance: LEVETIRACETAM
     Indication: PARTIAL SEIZURES
     Dosage: UNKNOWN DOSE
  8. METHOTREXATE. [Concomitant]
     Active Substance: METHOTREXATE
     Dosage: ONCE PER WEEK 12.5-0-0 MG
  9. CARBAMAZEPINE. [Suspect]
     Active Substance: CARBAMAZEPINE
     Indication: PARTIAL SEIZURES
     Dosage: UNKNOWN DOSE
     Dates: start: 2017, end: 2017
  10. PREDNISONE. [Concomitant]
     Active Substance: PREDNISONE
     Indication: PRODUCT USED FOR UNKNOWN INDICATION
     Dosage: 40-20-0 MG

REACTIONS (5)
  - Drug ineffective [Unknown]
  - Dysarthria [Not Recovered/Not Resolved]
  - Dementia [Not Recovered/Not Resolved]
  - Treatment noncompliance [Unknown]
  - Speech disorder [Not Recovered/Not Resolved]

NARRATIVE: CASE EVENT DATE: 2017
